FAERS Safety Report 11774775 (Version 1)
Quarter: 2015Q4

REPORT INFORMATION
  Report Type: Spontaneous
  Country: US (occurrence: US)
  Receive Date: 20151124
  Receipt Date: 20151124
  Transmission Date: 20160304
  Serious: No
  Sender: FDA-Public Use
  Company Number: US-PURDUE-USA-2015-0125949

PATIENT
  Sex: Female
  Weight: 109.21 kg

DRUGS (1)
  1. HYSINGLA ER [Suspect]
     Active Substance: HYDROCODONE BITARTRATE
     Indication: PAIN
     Dosage: 20 MG, Q24H
     Route: 048

REACTIONS (4)
  - Somnolence [Unknown]
  - Mental status changes [Unknown]
  - Sedation [Unknown]
  - Inadequate analgesia [Unknown]
